FAERS Safety Report 7243379-8 (Version None)
Quarter: 2011Q1

REPORT INFORMATION
  Report Type: 
  Country: None (occurrence: None)
  Receive Date: 20110125
  Receipt Date: 20110113
  Transmission Date: 20110831
  Serious: Yes (Other)
  Sender: FDA-Public Use
  Company Number: JP-ELI_LILLY_AND_COMPANY-JP201007007389

PATIENT
  Age: 36 Year
  Sex: Female
  Weight: 78.6 kg

DRUGS (97)
  1. DECADRON [Concomitant]
     Route: 048
     Dates: start: 20100308, end: 20100310
  2. DECADRON /NET/ [Concomitant]
     Dosage: UNK, UNK
     Route: 042
     Dates: start: 20091208, end: 20091208
  3. DECADRON /NET/ [Concomitant]
     Route: 042
     Dates: start: 20100517, end: 20100518
  4. DECADRON /NET/ [Concomitant]
     Route: 042
     Dates: start: 20100706, end: 20100706
  5. DECADRON /NET/ [Concomitant]
     Route: 042
     Dates: start: 20100824, end: 20100824
  6. GRANISETRON /01178102/ [Concomitant]
     Route: 042
     Dates: start: 20100105, end: 20100105
  7. GRANISETRON /01178102/ [Concomitant]
     Route: 042
     Dates: start: 20100518, end: 20100518
  8. GRANISETRON /01178102/ [Concomitant]
     Route: 042
     Dates: start: 20100609, end: 20100609
  9. MANNITOL [Concomitant]
     Route: 042
     Dates: start: 20100105, end: 20100105
  10. RAMELTEON [Concomitant]
     Dosage: UNK, UNK
     Route: 048
     Dates: start: 20100609, end: 20100613
  11. RAMELTEON [Concomitant]
     Route: 048
     Dates: start: 20100913, end: 20100915
  12. GRAN [Concomitant]
     Route: 058
     Dates: start: 20100524, end: 20100524
  13. TRANSAMIN [Concomitant]
     Indication: INFLUENZA LIKE ILLNESS
     Route: 065
  14. PARIET /JPN/ [Concomitant]
     Route: 048
     Dates: start: 20100531, end: 20100606
  15. BANAN [Concomitant]
     Indication: LOCALISED INFECTION
     Route: 048
     Dates: start: 20100709, end: 20100711
  16. PEMETREXED [Suspect]
     Indication: LUNG ADENOCARCINOMA STAGE III
     Dosage: 904 MG, UNK
     Route: 042
     Dates: start: 20091208, end: 20091208
  17. PEMETREXED [Suspect]
     Dosage: 720 MG, UNK
     Route: 042
     Dates: start: 20100518, end: 20100609
  18. DECADRON [Concomitant]
     Route: 048
     Dates: start: 20100707, end: 20100707
  19. DECADRON /NET/ [Concomitant]
     Route: 042
     Dates: start: 20100426, end: 20100427
  20. DECADRON /NET/ [Concomitant]
     Route: 042
     Dates: start: 20101013, end: 20101013
  21. DECADRON /NET/ [Concomitant]
     Route: 042
     Dates: start: 20101109, end: 20101109
  22. MANNITOL [Concomitant]
     Route: 042
     Dates: start: 20100126, end: 20100126
  23. GRAN [Concomitant]
     Route: 058
     Dates: start: 20100616, end: 20100618
  24. MUCOSTA [Concomitant]
     Indication: INFLUENZA LIKE ILLNESS
     Route: 048
     Dates: start: 20100531, end: 20100606
  25. PEMETREXED [Suspect]
     Dosage: 900 MG, OTHER
     Route: 042
     Dates: start: 20100105, end: 20100126
  26. PEMETREXED [Suspect]
     Dosage: 730 MG, OTHER
     Route: 042
     Dates: start: 20100706
  27. PLATOSIN [Concomitant]
     Dosage: 135 MG, UNK
     Route: 042
     Dates: start: 20100105, end: 20100126
  28. PLATOSIN [Concomitant]
     Dosage: 134 MG, UNK
     Route: 042
     Dates: start: 20100216, end: 20100216
  29. METHYCOBAL [Concomitant]
     Dosage: 1 MG, UNK
     Route: 030
     Dates: start: 20091117, end: 20101006
  30. DECADRON [Concomitant]
     Route: 048
     Dates: start: 20091209, end: 20091209
  31. DECADRON [Concomitant]
     Route: 048
     Dates: start: 20100125, end: 20100127
  32. DECADRON [Concomitant]
     Route: 048
     Dates: start: 20100426, end: 20100427
  33. DECADRON [Concomitant]
     Route: 048
     Dates: start: 20100608, end: 20100609
  34. DECADRON /NET/ [Concomitant]
     Route: 042
     Dates: start: 20100125, end: 20100127
  35. DECADRON /NET/ [Concomitant]
     Route: 042
     Dates: start: 20100608, end: 20100609
  36. DECADRON /NET/ [Concomitant]
     Route: 042
     Dates: start: 20100803, end: 20100803
  37. RAMELTEON [Concomitant]
     Route: 048
     Dates: start: 20100518, end: 20100522
  38. RAMELTEON [Concomitant]
     Indication: NAUSEA
     Route: 048
     Dates: start: 20100612
  39. PANVITAN [Concomitant]
     Dosage: UNK, DAILY (1/D), 0.5 MG/D AS FOLIC ACID
     Route: 048
     Dates: start: 20091117
  40. DECADRON [Concomitant]
     Route: 048
     Dates: start: 20100329, end: 20100330
  41. DECADRON [Concomitant]
     Route: 048
     Dates: start: 20101108, end: 20101108
  42. DECADRON [Concomitant]
     Route: 048
     Dates: start: 20101206, end: 20101206
  43. DECADRON /NET/ [Concomitant]
     Route: 042
     Dates: start: 20100104, end: 20100106
  44. DECADRON /NET/ [Concomitant]
     Route: 042
     Dates: start: 20101207, end: 20101207
  45. GRANISETRON /01178102/ [Concomitant]
     Route: 042
     Dates: start: 20100330, end: 20100330
  46. MANNITOL [Concomitant]
     Route: 042
     Dates: start: 20091208, end: 20091208
  47. SOL MEDROL [Concomitant]
     Route: 042
     Dates: start: 20100217, end: 20100221
  48. RAMELTEON [Concomitant]
     Route: 048
     Dates: start: 20100308, end: 20100310
  49. RAMELTEON [Concomitant]
     Route: 048
     Dates: start: 20100628, end: 20100702
  50. GRAN [Concomitant]
     Indication: BONE MARROW FAILURE
     Dosage: UNK, UNK
     Route: 058
     Dates: start: 20100315, end: 20100317
  51. GRAN [Concomitant]
     Route: 058
     Dates: start: 20100406, end: 20100407
  52. GRAN [Concomitant]
     Route: 058
     Dates: start: 20100716, end: 20100716
  53. LOXOPROFEN SODIUM [Concomitant]
     Indication: CANCER PAIN
     Route: 048
     Dates: start: 20100316, end: 20100606
  54. METHYCOBAL [Concomitant]
     Indication: HYPOAESTHESIA
     Route: 048
     Dates: start: 20100524, end: 20100530
  55. METHYCOBAL [Concomitant]
     Route: 048
     Dates: start: 20100606, end: 20100613
  56. PEMETREXED [Suspect]
     Dosage: 880 MG, UNK
     Route: 042
     Dates: start: 20100309, end: 20100330
  57. PEMETREXED [Suspect]
     Dosage: 710 MG, UNK
     Route: 042
     Dates: start: 20100427, end: 20100427
  58. DECADRON [Concomitant]
     Route: 048
     Dates: start: 20100804, end: 20100804
  59. DECADRON [Concomitant]
     Route: 048
     Dates: start: 20100913, end: 20100913
  60. GRANISETRON /01178102/ [Concomitant]
     Route: 042
     Dates: start: 20100427, end: 20100427
  61. GRANISETRON /01178102/ [Concomitant]
     Route: 042
     Dates: start: 20100706, end: 20100706
  62. GRANISETRON /01178102/ [Concomitant]
     Route: 042
     Dates: start: 20100803, end: 20100803
  63. SOL MEDROL [Concomitant]
     Route: 042
     Dates: start: 20100127, end: 20100131
  64. TAKEPRON [Concomitant]
     Indication: PROPHYLAXIS
     Route: 048
     Dates: start: 20091211
  65. GRANISETRON /01178102/ [Concomitant]
     Route: 042
     Dates: start: 20100126, end: 20100126
  66. GRANISETRON /01178102/ [Concomitant]
     Route: 042
     Dates: start: 20100309, end: 20100309
  67. GRANISETRON /01178102/ [Concomitant]
     Route: 042
     Dates: start: 20101109, end: 20101109
  68. GRANISETRON /01178102/ [Concomitant]
     Route: 042
     Dates: start: 20101207, end: 20101207
  69. SOL MEDROL [Concomitant]
     Route: 042
     Dates: start: 20091209, end: 20091212
  70. EMEND [Concomitant]
     Route: 048
     Dates: start: 20100331, end: 20100402
  71. CALONAL [Concomitant]
     Indication: BACK PAIN
     Route: 065
     Dates: start: 20091213, end: 20091222
  72. PEMETREXED [Suspect]
     Dosage: 894 MG, UNK
     Route: 042
     Dates: start: 20100216, end: 20100216
  73. PLATOSIN [Concomitant]
     Indication: LUNG ADENOCARCINOMA STAGE III
     Dosage: 136 MG, UNK
     Route: 042
     Dates: start: 20091208, end: 20091208
  74. DECADRON [Concomitant]
     Dosage: UNK, UNK
     Route: 048
     Dates: start: 20091207, end: 20091207
  75. DECADRON [Concomitant]
     Route: 048
     Dates: start: 20100215, end: 20100217
  76. DECADRON [Concomitant]
     Route: 048
     Dates: start: 20100517, end: 20100518
  77. GRANISETRON /01178102/ [Concomitant]
     Route: 042
     Dates: start: 20100824, end: 20100824
  78. GRANISETRON /01178102/ [Concomitant]
     Route: 042
     Dates: start: 20100914, end: 20100914
  79. GRANISETRON /01178102/ [Concomitant]
     Route: 042
     Dates: start: 20101013, end: 20101013
  80. MANNITOL [Concomitant]
     Route: 042
     Dates: start: 20100216, end: 20100216
  81. SOL MEDROL [Concomitant]
     Route: 042
     Dates: start: 20100106, end: 20100110
  82. RAMELTEON [Concomitant]
     Route: 048
     Dates: start: 20100329, end: 20100402
  83. PRIMPERAN TAB [Concomitant]
     Indication: NAUSEA
     Dosage: UNK, UNK
     Route: 065
     Dates: start: 20091209, end: 20100407
  84. GRAN [Concomitant]
     Route: 058
     Dates: start: 20100507, end: 20100507
  85. WARFARIN POTASSIUM [Concomitant]
     Indication: FIBRIN D DIMER INCREASED
     Route: 048
     Dates: start: 20100316
  86. GARENOXACIN MESYLATE [Concomitant]
     Indication: PYREXIA
     Route: 048
     Dates: start: 20100531, end: 20100606
  87. MUCODYNE [Concomitant]
     Indication: INFLUENZA LIKE ILLNESS
     Route: 048
     Dates: start: 20100531, end: 20100606
  88. ASTOMIN [Concomitant]
     Indication: INFLUENZA LIKE ILLNESS
     Route: 048
     Dates: start: 20100531, end: 20100606
  89. DECADRON [Concomitant]
     Route: 048
     Dates: start: 20100104, end: 20100106
  90. DECADRON [Concomitant]
     Route: 048
     Dates: start: 20100824, end: 20100824
  91. DECADRON [Concomitant]
     Route: 048
     Dates: start: 20101012, end: 20101012
  92. DECADRON /NET/ [Concomitant]
     Route: 042
     Dates: start: 20100215, end: 20100217
  93. DECADRON /NET/ [Concomitant]
     Route: 042
     Dates: start: 20100914, end: 20100914
  94. GRANISETRON /01178102/ [Concomitant]
     Dosage: UNK, UNK
     Route: 042
     Dates: start: 20091208, end: 20091208
  95. GRANISETRON /01178102/ [Concomitant]
     Route: 042
     Dates: start: 20100216, end: 20100216
  96. KENALOG [Concomitant]
     Indication: STOMATITIS
     Route: 002
     Dates: start: 20091213, end: 20091217
  97. SAWACILLIN [Concomitant]
     Indication: LOCALISED INFECTION
     Route: 048
     Dates: start: 20100712, end: 20100719

REACTIONS (2)
  - LIVER FUNCTION TEST ABNORMAL [None]
  - MALAISE [None]
